FAERS Safety Report 7073140-9 (Version None)
Quarter: 2010Q4

REPORT INFORMATION
  Report Type: 
  Country: None (occurrence: None)
  Receive Date: 20101029
  Receipt Date: 20100513
  Transmission Date: 20110411
  Serious: No
  Sender: FDA-Public Use
  Company Number: A0857484A

PATIENT
  Age: 53 Year
  Sex: Female

DRUGS (4)
  1. ADVAIR DISKUS 100/50 [Suspect]
     Indication: ASTHMA
     Dosage: 1PUFF PER DAY
     Route: 055
     Dates: start: 20090101, end: 20100416
  2. SINGULAIR [Concomitant]
  3. RITALIN [Concomitant]
  4. VITAMINS [Concomitant]

REACTIONS (10)
  - BRONCHITIS [None]
  - COUGH [None]
  - DRUG INEFFECTIVE [None]
  - DYSPHONIA [None]
  - ILL-DEFINED DISORDER [None]
  - LARYNGITIS [None]
  - LUNG DISORDER [None]
  - PRODUCT QUALITY ISSUE [None]
  - VOCAL CORD DISORDER [None]
  - WHEEZING [None]
